FAERS Safety Report 9331970 (Version 1)
Quarter: 2013Q2

REPORT INFORMATION
  Report Type: Spontaneous
  Country: US (occurrence: None)
  Receive Date: 20130603
  Receipt Date: 20130603
  Transmission Date: 20140414
  Serious: Yes (Hospitalization)
  Sender: FDA-Public Use
  Company Number: 1726189

PATIENT
  Age: 60 Year
  Sex: Female
  Weight: 107.73 kg

DRUGS (9)
  1. STERILE WATER FOR INJECTION [Suspect]
     Indication: DRUG THERAPY
     Route: 041
     Dates: start: 20121023
  2. STERILE WATER FOR INJECTION [Suspect]
     Indication: DRUG THERAPY
     Route: 041
     Dates: start: 20121023
  3. STERILE WATER FOR INJECTION [Suspect]
     Route: 041
     Dates: start: 20121023
  4. SODIUM CHLORIDE [Suspect]
     Indication: DRUG THERAPY
     Route: 041
     Dates: start: 20121023
  5. SODIUM CHLORIDE [Suspect]
     Indication: DRUG THERAPY
     Route: 041
     Dates: start: 20121023
  6. SODIUM CHLORIDE [Suspect]
     Indication: DRUG THERAPY
     Route: 041
     Dates: start: 20121023
  7. PIPERACILLIN/TAZOBACTAM [Suspect]
     Indication: CYSTITIS
     Route: 041
     Dates: start: 20121023
  8. PIPERACILLIN/TAZOBACTAM [Suspect]
     Indication: CYSTITIS
     Route: 041
     Dates: start: 20121113, end: 20121126
  9. PIPERACILLIN/TAZOBACTAM [Suspect]
     Indication: CYSTITIS
     Route: 041
     Dates: start: 20121204

REACTIONS (4)
  - Dizziness [None]
  - Loss of consciousness [None]
  - Blood pressure increased [None]
  - Cystitis [None]
